FAERS Safety Report 13137619 (Version 1)
Quarter: 2017Q1

REPORT INFORMATION
  Report Type: Spontaneous
  Country: US (occurrence: US)
  Receive Date: 20170122
  Receipt Date: 20170122
  Transmission Date: 20170428
  Serious: No
  Sender: FDA-Public Use
  Company Number: None

PATIENT
  Age: 58 Year
  Sex: Female

DRUGS (3)
  1. EPCLUSA [Suspect]
     Active Substance: SOFOSBUVIR\VELPATASVIR
     Indication: HEPATITIS C
     Dosage: 400/100 MG QD ORAL
     Route: 048
  2. EPCLUSA [Suspect]
     Active Substance: SOFOSBUVIR\VELPATASVIR
     Indication: ANXIETY
     Dosage: 400/100 MG QD ORAL
     Route: 048
  3. EPCLUSA [Suspect]
     Active Substance: SOFOSBUVIR\VELPATASVIR
     Indication: HYPERGLYCAEMIA
     Dosage: 400/100 MG QD ORAL
     Route: 048

REACTIONS (5)
  - Abdominal pain [None]
  - Nausea [None]
  - Concussion [None]
  - Diarrhoea [None]
  - Stress [None]

NARRATIVE: CASE EVENT DATE: 20170122
